FAERS Safety Report 6267697-5 (Version None)
Quarter: 2009Q3

REPORT INFORMATION
  Report Type: 
  Country: None (occurrence: None)
  Receive Date: 20090714
  Receipt Date: 20090706
  Transmission Date: 20100115
  Serious: Yes (Other)
  Sender: FDA-Public Use
  Company Number: US-WYE-H10030609

PATIENT
  Sex: Male
  Weight: 74 kg

DRUGS (8)
  1. PRISTIQ [Suspect]
     Indication: DEPRESSION
     Route: 048
     Dates: start: 20090301, end: 20090501
  2. PRISTIQ [Suspect]
     Route: 048
     Dates: start: 20090501, end: 20090101
  3. PRISTIQ [Suspect]
     Dates: start: 20090101, end: 20090703
  4. CANNABIS [Concomitant]
     Dosage: USES FREQUENTLY WITH MEDICATIONS
  5. XANAX [Concomitant]
     Dosage: UNKNOWN DOSE 3 TIMES/DAY
  6. LAMOTRIGINE [Concomitant]
     Dosage: 25 MG, FREQUENCY UNKNOWN
     Dates: start: 20090702
  7. LITHIUM [Suspect]
     Dates: end: 20090626
  8. SEROQUEL [Concomitant]

REACTIONS (7)
  - ANXIETY [None]
  - CONSTIPATION [None]
  - DISTURBANCE IN ATTENTION [None]
  - MEMORY IMPAIRMENT [None]
  - PANIC ATTACK [None]
  - SUICIDAL IDEATION [None]
  - TACHYPHRENIA [None]
